FAERS Safety Report 25217027 (Version 1)
Quarter: 2025Q2

REPORT INFORMATION
  Report Type: Spontaneous
  Country: DE (occurrence: DE)
  Receive Date: 20250419
  Receipt Date: 20250419
  Transmission Date: 20250717
  Serious: Yes (Congenital Anomaly, Other)
  Sender: AUROBINDO
  Company Number: DE-EMB-M202302454-1

PATIENT
  Sex: Male
  Weight: 2.22 kg

DRUGS (12)
  1. METOPROLOL [Suspect]
     Active Substance: METOPROLOL
     Indication: Hypertension
     Dosage: 35.6 MILLIGRAM, ONCE A DAY
     Route: 064
     Dates: start: 202211, end: 202303
  2. METOPROLOL [Suspect]
     Active Substance: METOPROLOL
     Dosage: 35.6 MILLIGRAM, ONCE A DAY
     Route: 064
     Dates: start: 202303, end: 202304
  3. METOPROLOL [Suspect]
     Active Substance: METOPROLOL
     Dosage: 47.5 MILLIGRAM, ONCE A DAY
     Route: 064
     Dates: start: 202304, end: 202306
  4. METOPROLOL [Suspect]
     Active Substance: METOPROLOL
     Dosage: 70.75 MILLIGRAM, ONCE A DAY
     Route: 064
     Dates: start: 202306, end: 202307
  5. METOPROLOL [Suspect]
     Active Substance: METOPROLOL
     Dosage: 95 MILLIGRAM, ONCE A DAY
     Route: 064
     Dates: start: 202307, end: 202307
  6. METOPROLOL [Suspect]
     Active Substance: METOPROLOL
     Route: 064
     Dates: start: 202307, end: 202307
  7. ESCITALOPRAM [Suspect]
     Active Substance: ESCITALOPRAM OXALATE
     Indication: Depression
     Dosage: 4 MILLIGRAM, ONCE A DAY (NOT CLEAR, IF SHE TOOK 4 OR 5 MG/DSINCE 2012)
     Route: 064
     Dates: start: 202211, end: 202307
  8. METHYLDOPA [Concomitant]
     Active Substance: METHYLDOPA
     Indication: Hypertension
     Dosage: 250 MILLIGRAM, TWO TIMES A DAY
     Route: 064
     Dates: start: 202303, end: 202303
  9. METHYLDOPA [Concomitant]
     Active Substance: METHYLDOPA
     Dosage: 250 MILLIGRAM, TWO TIMES A DAY
     Route: 064
     Dates: start: 202307, end: 202307
  10. ASPIRIN [Concomitant]
     Active Substance: ASPIRIN
     Indication: Prophylaxis
     Dosage: 50 MILLIGRAM, ONCE A DAY
     Route: 064
     Dates: start: 202303, end: 202303
  11. ASPIRIN [Concomitant]
     Active Substance: ASPIRIN
     Dosage: 150 MILLIGRAM, ONCE A DAY (POSSIBLY LONGER)
     Route: 064
     Dates: start: 202303, end: 202303
  12. NIFEDIPINE [Concomitant]
     Active Substance: NIFEDIPINE
     Indication: Hypertensive crisis
     Route: 064
     Dates: start: 202307, end: 202307

REACTIONS (2)
  - Congenital vesicoureteric reflux [Not Recovered/Not Resolved]
  - Foetal exposure during pregnancy [Unknown]
